FAERS Safety Report 15291173 (Version 4)
Quarter: 2019Q1

REPORT INFORMATION
  Report Type: Report from Study
  Country: US (occurrence: US)
  Receive Date: 20180817
  Receipt Date: 20190104
  Transmission Date: 20190417
  Serious: No
  Sender: FDA-Public Use
  Company Number: US-SA-2018SA227516

PATIENT
  Age: 62 Year
  Sex: Female

DRUGS (9)
  1. VITAMIN D3 [Concomitant]
     Active Substance: CHOLECALCIFEROL
  2. STRONTIUM [Concomitant]
     Active Substance: STRONTIUM
  3. AMINO ACIDS [Concomitant]
     Active Substance: AMINO ACIDS
  4. VITAMIN B6 [Concomitant]
     Active Substance: PYRIDOXINE HYDROCHLORIDE
  5. HYDROCORTISONE. [Concomitant]
     Active Substance: HYDROCORTISONE
  6. SHINGRIX [Concomitant]
     Active Substance: RECOMBINANT VARICELLA ZOSTER VIRUS (VZV) GLYCOPROTEIN E
  7. TERIFLUNOMIDE. [Suspect]
     Active Substance: TERIFLUNOMIDE
     Indication: MULTIPLE SCLEROSIS
     Dosage: 14 MG, QD
     Route: 048
     Dates: start: 20180718, end: 20181219
  8. VITAMIN B12 [Concomitant]
     Active Substance: CYANOCOBALAMIN
  9. TURMERIC [CURCUMA LONGA] [Concomitant]

REACTIONS (10)
  - Fatigue [Unknown]
  - Chills [Recovered/Resolved]
  - Humidity intolerance [Unknown]
  - Pain [Recovered/Resolved]
  - Heart rate increased [Recovered/Resolved]
  - Temperature intolerance [Unknown]
  - Pyrexia [Recovered/Resolved]
  - Headache [Unknown]
  - Musculoskeletal stiffness [Recovered/Resolved]
  - Muscular weakness [Unknown]

NARRATIVE: CASE EVENT DATE: 2018
